FAERS Safety Report 6181147-9 (Version None)
Quarter: 2009Q2

REPORT INFORMATION
  Report Type: 
  Country: None (occurrence: None)
  Receive Date: 20090506
  Receipt Date: 20090427
  Transmission Date: 20091009
  Serious: Yes (Other)
  Sender: FDA-Public Use
  Company Number: PHHY2009AU15752

PATIENT
  Sex: Male

DRUGS (2)
  1. GLEEVEC [Suspect]
     Indication: CHRONIC MYELOID LEUKAEMIA
     Dosage: 600 MG
  2. CITALOPRAM [Concomitant]
     Dosage: 20 MG EVENING

REACTIONS (3)
  - DEPRESSION [None]
  - FLAT AFFECT [None]
  - SUICIDAL IDEATION [None]
